FAERS Safety Report 10510955 (Version 3)
Quarter: 2015Q1

REPORT INFORMATION
  Report Type: Report from Study
  Country: JP (occurrence: JP)
  Receive Date: 20141010
  Receipt Date: 20150122
  Transmission Date: 20150720
  Serious: Yes (Life-Threatening, Hospitalization, Other)
  Sender: FDA-Public Use
  Company Number: JP-GSKJP-A201411083AA

PATIENT
  Age: 77 Year
  Sex: Male
  Weight: 55 kg

DRUGS (24)
  1. PREDONINE [Concomitant]
     Active Substance: PREDNISOLONE\PREDNISOLONE ACETATE\PREDNISOLONE SODIUM SUCCINATE
     Route: 042
     Dates: start: 20130820, end: 20130904
  2. TEICOPLANINE [Suspect]
     Active Substance: TEICOPLANIN
     Route: 041
     Dates: start: 20130811, end: 20130829
  3. PREDONINE [Concomitant]
     Active Substance: PREDNISOLONE\PREDNISOLONE ACETATE\PREDNISOLONE SODIUM SUCCINATE
     Route: 042
     Dates: start: 20130905, end: 20130907
  4. HUMULIN R [Concomitant]
     Active Substance: INSULIN HUMAN
     Dosage: 10 IU, QD
     Route: 051
     Dates: start: 20130715, end: 20130904
  5. ELASPOL [Concomitant]
     Active Substance: SIVELESTAT SODIUM
     Route: 042
     Dates: start: 20130818, end: 20130902
  6. VFEND [Concomitant]
     Active Substance: VORICONAZOLE
     Route: 042
     Dates: start: 20130823, end: 20130831
  7. ELNEOPA NO.2 [Concomitant]
     Active Substance: AMINO ACIDS\CARBOHYDRATES\ELECTROLYTES NOS\VITAMINS
     Indication: PNEUMONIA
     Route: 041
     Dates: start: 20130822, end: 20130904
  8. CRAVIT [Concomitant]
     Active Substance: LEVOFLOXACIN
     Route: 041
     Dates: start: 20130831, end: 20130904
  9. MAXIPIME [Concomitant]
     Active Substance: CEFEPIME HYDROCHLORIDE
     Route: 042
     Dates: start: 20130830, end: 20130831
  10. DORMICUM [Concomitant]
     Active Substance: MIDAZOLAM\MIDAZOLAM HYDROCHLORIDE
     Indication: PNEUMONIA
     Route: 051
     Dates: start: 20130821, end: 20130821
  11. OMEPRAL [Suspect]
     Active Substance: OMEPRAZOLE
     Indication: PROPHYLAXIS AGAINST GASTROINTESTINAL ULCER
     Route: 042
     Dates: start: 20130818, end: 20130904
  12. FUROSEMIDE. [Concomitant]
     Active Substance: FUROSEMIDE
     Route: 042
     Dates: start: 20130824, end: 20130907
  13. SOLU-MEDROL [Concomitant]
     Active Substance: METHYLPREDNISOLONE SODIUM SUCCINATE
     Indication: PNEUMOCYSTIS JIROVECII PNEUMONIA
     Route: 042
     Dates: start: 20130824, end: 20130826
  14. ATOVAQUONE. [Suspect]
     Active Substance: ATOVAQUONE
     Indication: PNEUMOCYSTIS JIROVECII PNEUMONIA
     Route: 048
     Dates: start: 20130822, end: 20130903
  15. FINIBAX [Concomitant]
     Active Substance: DORIPENEM MONOHYDRATE
     Route: 041
     Dates: start: 20130809, end: 20130829
  16. DIPRIVAN [Concomitant]
     Active Substance: PROPOFOL
     Indication: PNEUMONIA
     Route: 042
     Dates: start: 20130821, end: 20130907
  17. SULFAMETHOXAZOLE AND TRIMETHOPRIM [Suspect]
     Active Substance: SULFAMETHOXAZOLE\TRIMETHOPRIM
     Indication: PNEUMOCYSTIS JIROVECII PNEUMONIA
     Dosage: 4 DF, TID
     Route: 041
     Dates: start: 20130815, end: 20130904
  18. FUROSEMIDE. [Concomitant]
     Active Substance: FUROSEMIDE
     Route: 042
     Dates: start: 20130812, end: 20130823
  19. ELNEOPA NO.2 [Concomitant]
     Active Substance: AMINO ACIDS\CARBOHYDRATES\ELECTROLYTES NOS\VITAMINS
     Indication: ENDOTRACHEAL INTUBATION
  20. ALBUMIN [Concomitant]
     Active Substance: ALBUMIN (HUMAN)
     Route: 041
     Dates: start: 20130824, end: 20130827
  21. AMBISOME [Concomitant]
     Active Substance: AMPHOTERICIN B
     Route: 041
     Dates: start: 20130812, end: 20130822
  22. DORMICUM [Concomitant]
     Active Substance: MIDAZOLAM\MIDAZOLAM HYDROCHLORIDE
     Indication: ENDOTRACHEAL INTUBATION
  23. DIPRIVAN [Concomitant]
     Active Substance: PROPOFOL
     Indication: ENDOTRACHEAL INTUBATION
  24. ALBUMIN [Concomitant]
     Active Substance: ALBUMIN (HUMAN)
     Route: 041
     Dates: start: 20130831, end: 20130904

REACTIONS (3)
  - Pharyngeal haemorrhage [Not Recovered/Not Resolved]
  - Liver disorder [Not Recovered/Not Resolved]
  - Melaena [Not Recovered/Not Resolved]

NARRATIVE: CASE EVENT DATE: 20130823
